FAERS Safety Report 9739946 (Version 2)
Quarter: 2014Q1

REPORT INFORMATION
  Report Type: Spontaneous
  Country: US (occurrence: US)
  Receive Date: 20131209
  Receipt Date: 20140110
  Transmission Date: 20141002
  Serious: Yes (Death)
  Sender: FDA-Public Use
  Company Number: US-ASTELLAS-2013US012456

PATIENT
  Age: 81 Year
  Sex: Male
  Weight: 83 kg

DRUGS (1)
  1. XTANDI [Suspect]
     Indication: PROSTATE CANCER METASTATIC
     Dosage: 160 MG, ONCE DAILY
     Route: 048
     Dates: start: 201310, end: 201312

REACTIONS (2)
  - Death [Fatal]
  - Abdominal discomfort [Unknown]
